FAERS Safety Report 21088252 (Version 2)
Quarter: 2022Q3

REPORT INFORMATION
  Report Type: Report from Study
  Country: US (occurrence: US)
  Receive Date: 20220715
  Receipt Date: 20220822
  Transmission Date: 20221026
  Serious: No
  Sender: FDA-Public Use
  Company Number: US-GILEAD-2022-0589481

PATIENT
  Age: 84 Year
  Sex: Female
  Weight: 43.084 kg

DRUGS (4)
  1. AMBRISENTAN [Suspect]
     Active Substance: AMBRISENTAN
     Indication: Product used for unknown indication
     Dosage: UNK
     Route: 065
  2. TYVASO [Suspect]
     Active Substance: TREPROSTINIL
     Indication: Pulmonary arterial hypertension
     Dosage: UNK
     Route: 055
     Dates: start: 20210617
  3. TYVASO [Suspect]
     Active Substance: TREPROSTINIL
     Dosage: 18-90 UG (3-15 BREATHS), QID
     Route: 055
  4. UPTRAVI [Concomitant]
     Active Substance: SELEXIPAG

REACTIONS (5)
  - Haemoglobin decreased [Unknown]
  - Protein total decreased [Unknown]
  - Dysphagia [Unknown]
  - Decreased appetite [Unknown]
  - Diarrhoea [Unknown]
